FAERS Safety Report 7006197-1 (Version None)
Quarter: 2010Q3

REPORT INFORMATION
  Report Type: 
  Country: None (occurrence: None)
  Receive Date: 20100921
  Receipt Date: 20100908
  Transmission Date: 20110219
  Serious: No
  Sender: FDA-Public Use
  Company Number: US-PFIZER INC-2010109561

PATIENT
  Sex: Female
  Weight: 91 kg

DRUGS (3)
  1. TOVIAZ [Suspect]
     Indication: URINARY INCONTINENCE
     Dosage: 4 MG, 1X/DAY
     Route: 048
     Dates: start: 20100101
  2. TOVIAZ [Suspect]
     Dosage: 8 MG DAILY
     Dates: start: 20100101
  3. LOTENSIN [Concomitant]
     Indication: HYPERTENSION
     Dosage: UNK

REACTIONS (2)
  - DRUG INEFFECTIVE [None]
  - RESTLESSNESS [None]
